FAERS Safety Report 16768026 (Version 1)
Quarter: 2019Q3

REPORT INFORMATION
  Report Type: Spontaneous
  Country: DE (occurrence: DE)
  Receive Date: 20190903
  Receipt Date: 20190903
  Transmission Date: 20191005
  Serious: Yes (Death, Other)
  Sender: FDA-Public Use
  Company Number: DE-ALEXION-A201913185

PATIENT
  Age: 66 Year
  Sex: Male

DRUGS (1)
  1. SOLIRIS [Suspect]
     Active Substance: ECULIZUMAB
     Indication: PAROXYSMAL NOCTURNAL HAEMOGLOBINURIA
     Route: 065

REACTIONS (10)
  - Coronary artery disease [Fatal]
  - Haemolysis [Unknown]
  - Transient ischaemic attack [Unknown]
  - Extravascular haemolysis [Unknown]
  - Arteriosclerosis [Fatal]
  - Haemochromatosis [Unknown]
  - Pulmonary oedema [Fatal]
  - Prostatic adenoma [Unknown]
  - Cardiac disorder [Fatal]
  - Serum ferritin increased [Unknown]
